FAERS Safety Report 6913716-X (Version None)
Quarter: 2010Q3

REPORT INFORMATION
  Report Type: 
  Country: None (occurrence: None)
  Receive Date: 20100806
  Receipt Date: 20100806
  Transmission Date: 20110219
  Serious: No
  Sender: FDA-Public Use
  Company Number: None

PATIENT
  Sex: Female
  Weight: 72.5755 kg

DRUGS (1)
  1. MACROBID [Suspect]
     Indication: URINARY TRACT INFECTION
     Dosage: 100MG 1 BID MOUTH
     Route: 048
     Dates: start: 20080101

REACTIONS (5)
  - CHILLS [None]
  - DYSPNOEA [None]
  - HYPERSENSITIVITY [None]
  - PYREXIA [None]
  - TREMOR [None]
